FAERS Safety Report 19887568 (Version 2)
Quarter: 2021Q4

REPORT INFORMATION
  Report Type: Spontaneous
  Country: ZA (occurrence: ZA)
  Receive Date: 20210928
  Receipt Date: 20211008
  Transmission Date: 20220303
  Serious: Yes (Other)
  Sender: FDA-Public Use
  Company Number: ZA-NOVOPROD-839211

PATIENT
  Age: 11 Year
  Sex: Male
  Weight: 64.4 kg

DRUGS (9)
  1. NORDITROPIN [Suspect]
     Active Substance: SOMATROPIN
     Indication: Hypopituitarism
     Dosage: 1.6 MG, QD
     Route: 065
     Dates: start: 202101, end: 20210611
  2. HYDROCORTISONE [Concomitant]
     Active Substance: HYDROCORTISONE
     Dosage: 5 MG
     Route: 065
  3. HYDROCORTISONE [Concomitant]
     Active Substance: HYDROCORTISONE
     Dosage: 7.5 MG
     Route: 065
  4. HYDROCORTISONE [Concomitant]
     Active Substance: HYDROCORTISONE
     Dosage: 2.5 MG
     Route: 065
  5. HYDROCORTISONE [Concomitant]
     Active Substance: HYDROCORTISONE
     Dosage: 10 MG
     Route: 065
  6. GLUCOPHAGE XR [Concomitant]
     Active Substance: METFORMIN HYDROCHLORIDE
     Dosage: 500 MG, TID
     Route: 065
  7. LEVOTHYROXINE [Concomitant]
     Active Substance: LEVOTHYROXINE
     Dosage: 100 ???G, QD
     Route: 065
  8. DDAVP DESMOPRESSIN [Concomitant]
     Dosage: 0.1 MG (TAKE 1 4X DAILY)
     Route: 065
  9. SOLU-CORTEF MIX O [Concomitant]
     Dosage: 50 IU
     Route: 065

REACTIONS (1)
  - CNS germinoma [Not Recovered/Not Resolved]

NARRATIVE: CASE EVENT DATE: 20210701
